FAERS Safety Report 7690813-5 (Version None)
Quarter: 2011Q3

REPORT INFORMATION
  Report Type: 
  Country: None (occurrence: None)
  Receive Date: 20110818
  Receipt Date: 20110809
  Transmission Date: 20111222
  Serious: Yes (Other)
  Sender: FDA-Public Use
  Company Number: NL-AMGEN-NLDSP2011037439

PATIENT
  Sex: Female

DRUGS (3)
  1. NAPROXEN [Concomitant]
     Dosage: UNK
  2. OMEPRAZOLE [Concomitant]
     Dosage: UNK
  3. ENBREL [Suspect]
     Indication: ANKYLOSING SPONDYLITIS
     Dosage: 50 MG, WEEKLY
     Dates: start: 20110523

REACTIONS (9)
  - MALAISE [None]
  - DIZZINESS [None]
  - BODY TEMPERATURE DECREASED [None]
  - HYPOTENSION [None]
  - HYPERSOMNIA [None]
  - HEPATIC ENZYME INCREASED [None]
  - DERMATITIS ALLERGIC [None]
  - FATIGUE [None]
  - SYNCOPE [None]
